FAERS Safety Report 9759712 (Version 2)
Quarter: 2015Q3

REPORT INFORMATION
  Report Type: Spontaneous
  Country: US (occurrence: US)
  Receive Date: 20131216
  Receipt Date: 20150806
  Transmission Date: 20151125
  Serious: No
  Sender: FDA-Public Use
  Company Number: US-GILEAD-2010-0029015

PATIENT
  Age: 76 Year
  Sex: Female
  Weight: 64.41 kg

DRUGS (12)
  1. HYDROXYCHLOROQUINE [Concomitant]
     Active Substance: HYDROXYCHLOROQUINE
  2. NORVASC [Concomitant]
     Active Substance: AMLODIPINE BESYLATE
  3. REVATIO [Concomitant]
     Active Substance: SILDENAFIL CITRATE
  4. GABAPENTIN. [Concomitant]
     Active Substance: GABAPENTIN
  5. A-Z MULTIVITAMIN [Concomitant]
  6. TYLENOL [Concomitant]
     Active Substance: ACETAMINOPHEN
  7. ADULT ASPIRIN [Concomitant]
  8. CELEBREX [Concomitant]
     Active Substance: CELECOXIB
  9. LETAIRIS [Suspect]
     Active Substance: AMBRISENTAN
     Indication: PULMONARY ARTERIAL HYPERTENSION
     Route: 048
     Dates: start: 20090504
  10. OMEPRAZOLE. [Concomitant]
     Active Substance: OMEPRAZOLE
  11. PREMARIN [Concomitant]
     Active Substance: ESTROGENS, CONJUGATED
  12. CIPRO [Concomitant]
     Active Substance: CIPROFLOXACIN HYDROCHLORIDE

REACTIONS (1)
  - Flushing [Unknown]

NARRATIVE: CASE EVENT DATE: 20100503
